FAERS Safety Report 7543014-5 (Version None)
Quarter: 2011Q2

REPORT INFORMATION
  Report Type: 
  Country: None (occurrence: None)
  Receive Date: 20110613
  Receipt Date: 20110607
  Transmission Date: 20111010
  Serious: Yes (Death, Hospitalization, Other)
  Sender: FDA-Public Use
  Company Number: PHEH2008US09962

PATIENT
  Sex: Female

DRUGS (31)
  1. TAMOXIFEN CITRATE [Concomitant]
     Dosage: UNK
  2. METHOTREXATE [Concomitant]
     Dosage: UNK
  3. PEPCID [Concomitant]
     Dosage: UNK
  4. ACETAMINOPHEN [Concomitant]
  5. MULTI-VITAMINS [Concomitant]
  6. THIOPENTAL SODIUM [Concomitant]
     Dosage: UNK
  7. NAVELBINE [Concomitant]
     Dosage: UNK
  8. ZOFRAN [Concomitant]
  9. KETOROLAC TROMETHAMINE [Concomitant]
  10. DEXAMETHASONE [Concomitant]
  11. RADIATION THERAPY [Concomitant]
     Dosage: UNK
  12. CLINDAMYCIN [Concomitant]
  13. TYLENOL-500 [Concomitant]
  14. ZOLPIDEM [Concomitant]
  15. BENADRYL [Concomitant]
  16. ALOXI [Concomitant]
     Dosage: UNK
  17. CODEINE SULFATE [Concomitant]
  18. HYDROMORPHONE HCL [Concomitant]
  19. CEPHALEXIN [Concomitant]
  20. ZOMETA [Suspect]
  21. CALCIUM CARBONATE [Concomitant]
  22. CYTOXAN [Concomitant]
     Dosage: UNK
  23. DECADRON [Concomitant]
     Dosage: UNK
  24. HYDRODIURIL [Concomitant]
     Dosage: UNK
  25. AVASTIN [Concomitant]
     Dosage: UNK
  26. CEFAZOLIN [Concomitant]
  27. ONDASETRON [Concomitant]
  28. KEFLEX [Concomitant]
  29. ENOXAPARIN [Concomitant]
  30. ADRIAMYCIN PFS [Concomitant]
     Dosage: UNK
  31. LOVENOX [Concomitant]

REACTIONS (60)
  - DIZZINESS [None]
  - VOMITING [None]
  - DYSARTHRIA [None]
  - BLOOD GLUCOSE INCREASED [None]
  - ATELECTASIS [None]
  - METASTASES TO CENTRAL NERVOUS SYSTEM [None]
  - MENTAL STATUS CHANGES [None]
  - CHILLS [None]
  - MUSCULAR WEAKNESS [None]
  - VISION BLURRED [None]
  - METASTASES TO MENINGES [None]
  - SPONDYLOLYSIS [None]
  - ANAEMIA [None]
  - HYDROCEPHALUS [None]
  - METASTASES TO LUNG [None]
  - GENERAL PHYSICAL HEALTH DETERIORATION [None]
  - PAIN [None]
  - UPPER RESPIRATORY TRACT INFECTION [None]
  - NASOPHARYNGITIS [None]
  - SPUTUM DISCOLOURED [None]
  - BRONCHIECTASIS [None]
  - BACK PAIN [None]
  - CONSTIPATION [None]
  - METASTASES TO LIVER [None]
  - BRONCHITIS [None]
  - DYSPNOEA [None]
  - PULMONARY CONGESTION [None]
  - APHASIA [None]
  - PYREXIA [None]
  - INSOMNIA [None]
  - NEOPLASM PROGRESSION [None]
  - NEOPLASM MALIGNANT [None]
  - OSTEONECROSIS OF JAW [None]
  - ANXIETY [None]
  - HEPATIC HAEMORRHAGE [None]
  - INTERSTITIAL LUNG DISEASE [None]
  - THROMBOCYTOPENIA [None]
  - URINARY INCONTINENCE [None]
  - LEUKOENCEPHALOPATHY [None]
  - ENCEPHALOMYELITIS [None]
  - DEPRESSED LEVEL OF CONSCIOUSNESS [None]
  - METASTASES TO BONE [None]
  - DECREASED INTEREST [None]
  - PULMONARY FIBROSIS [None]
  - PNEUMOTHORAX [None]
  - HEADACHE [None]
  - CONFUSIONAL STATE [None]
  - GAIT DISTURBANCE [None]
  - CARCINOEMBRYONIC ANTIGEN INCREASED [None]
  - UNRESPONSIVE TO STIMULI [None]
  - ARTHRALGIA [None]
  - JOINT SWELLING [None]
  - BLOOD ALKALINE PHOSPHATASE INCREASED [None]
  - BLOOD LACTATE DEHYDROGENASE INCREASED [None]
  - HEPATIC CYST [None]
  - EMPHYSEMA [None]
  - MENINGITIS [None]
  - PLEURAL EFFUSION [None]
  - OSTEOPENIA [None]
  - LUNG DISORDER [None]
